FAERS Safety Report 15000547 (Version 1)
Quarter: 2018Q2

REPORT INFORMATION
  Report Type: Spontaneous
  Country: FR (occurrence: FR)
  Receive Date: 20180612
  Receipt Date: 20180612
  Transmission Date: 20180711
  Serious: Yes (Hospitalization)
  Sender: FDA-Public Use
  Company Number: FR-TEVA-2018-FR-905467

PATIENT
  Age: 55 Year
  Sex: Female
  Weight: 42 kg

DRUGS (8)
  1. TRANXENE 10 MG, G?LULE [Concomitant]
     Route: 048
     Dates: start: 20180323, end: 20180403
  2. PAROXETINE. [Suspect]
     Active Substance: PAROXETINE
     Indication: DEPRESSION
     Dosage: 40 MILLIGRAM DAILY;
     Route: 048
     Dates: end: 20180321
  3. LORMETAZEPAM [Concomitant]
     Active Substance: LORMETAZEPAM
     Indication: DEPRESSION
     Dosage: INCONNUE
     Route: 048
     Dates: end: 20180321
  4. NICOPASS [Suspect]
     Active Substance: NICOTINE
     Indication: EX-TOBACCO USER
     Route: 048
     Dates: start: 20180323
  5. ALPRAZOLAM. [Concomitant]
     Active Substance: ALPRAZOLAM
     Indication: DEPRESSION
     Dosage: 1.25 MILLIGRAM DAILY;
     Route: 048
     Dates: end: 20180321
  6. PARACETAMOL [Concomitant]
     Active Substance: ACETAMINOPHEN
     Indication: PAIN
     Dosage: INCONNUE
     Route: 048
     Dates: start: 20180324
  7. MIRTAZAPINE. [Suspect]
     Active Substance: MIRTAZAPINE
     Indication: DEPRESSION
     Dosage: 30 MILLIGRAM DAILY;
     Route: 048
     Dates: end: 20180402
  8. THERALENE 4 POUR CENT, SOLUTION BUVABLE EN GOUTTES [Concomitant]
     Active Substance: TRIMEPRAZINE
     Dosage: 10 GTT DAILY;
     Route: 048
     Dates: start: 20180324, end: 20180409

REACTIONS (1)
  - Reversible cerebral vasoconstriction syndrome [Recovering/Resolving]

NARRATIVE: CASE EVENT DATE: 20180326
